FAERS Safety Report 4798871-2 (Version None)
Quarter: 2005Q4

REPORT INFORMATION
  Report Type: 
  Country: None (occurrence: None)
  Receive Date: 20051014
  Receipt Date: 20051010
  Transmission Date: 20060501
  Serious: Yes (Hospitalization)
  Sender: FDA-Public Use
  Company Number: PT-GLAXOSMITHKLINE-B0397078A

PATIENT
  Age: 71 Year
  Sex: Male
  Weight: 81 kg

DRUGS (2)
  1. AUGMENTIN '125' [Suspect]
     Indication: DENTAL DISORDER PROPHYLAXIS
     Dosage: 1000MG PER DAY
     Route: 048
     Dates: start: 20050915, end: 20050915
  2. NEBIVOLOL HCL [Concomitant]
     Route: 048

REACTIONS (1)
  - PURPURA [None]
